FAERS Safety Report 13912430 (Version 3)
Quarter: 2018Q2

REPORT INFORMATION
  Report Type: Spontaneous
  Country: US (occurrence: US)
  Receive Date: 20170828
  Receipt Date: 20180411
  Transmission Date: 20180711
  Serious: Yes (Other)
  Sender: FDA-Public Use
  Company Number: US-ASTRAZENECA-2017SE86572

PATIENT
  Age: 26176 Day
  Sex: Male
  Weight: 80.3 kg

DRUGS (5)
  1. ALPHAGAN P [Concomitant]
     Active Substance: BRIMONIDINE TARTRATE
  2. LOSARTAN. [Concomitant]
     Active Substance: LOSARTAN
  3. TRAVASTAN [Concomitant]
  4. FUROSEMIDE. [Concomitant]
     Active Substance: FUROSEMIDE
  5. TUDORZA PRESSAIR [Suspect]
     Active Substance: ACLIDINIUM BROMIDE
     Indication: CHRONIC OBSTRUCTIVE PULMONARY DISEASE
     Route: 055

REACTIONS (10)
  - Asthenia [Unknown]
  - Communication disorder [Unknown]
  - Cardiac arrest [Unknown]
  - Lung neoplasm malignant [Unknown]
  - Product quality issue [Unknown]
  - Drug dose omission [Unknown]
  - Brain injury [Unknown]
  - Intentional product misuse [Unknown]
  - Consciousness fluctuating [Unknown]
  - Nodule [Unknown]

NARRATIVE: CASE EVENT DATE: 20101130
